FAERS Safety Report 9912902 (Version 1)
Quarter: 2014Q1

REPORT INFORMATION
  Report Type: Report from Study
  Country: BE (occurrence: BE)
  Receive Date: 20140220
  Receipt Date: 20140220
  Transmission Date: 20141002
  Serious: Yes (Other)
  Sender: FDA-Public Use
  Company Number: BE-ROCHE-1349386

PATIENT
  Age: 80 Year
  Sex: Male

DRUGS (4)
  1. AVASTIN [Suspect]
     Indication: RECTOSIGMOID CANCER
     Route: 065
     Dates: start: 201304, end: 201307
  2. FOLINIC ACID [Suspect]
     Indication: RECTOSIGMOID CANCER
     Dosage: 8 CYCLI
     Route: 065
  3. 5-FLUOROURACIL [Suspect]
     Indication: RECTOSIGMOID CANCER
     Route: 065
  4. OXALIPLATIN [Suspect]
     Indication: RECTOSIGMOID CANCER
     Route: 065

REACTIONS (1)
  - Cardiovascular disorder [Unknown]
